FAERS Safety Report 5962709-8 (Version None)
Quarter: 2008Q4

REPORT INFORMATION
  Report Type: 
  Country: None (occurrence: None)
  Receive Date: 20081120
  Receipt Date: 20081114
  Transmission Date: 20090506
  Serious: Yes (Hospitalization)
  Sender: FDA-Public Use
  Company Number: 036798

PATIENT
  Age: 62 Year
  Sex: Male
  Weight: 70.3 kg

DRUGS (1)
  1. ADDERALL 10 [Suspect]
     Indication: ATTENTION DEFICIT/HYPERACTIVITY DISORDER
     Dosage: 20 MG, TID
     Dates: start: 20000101, end: 20080901

REACTIONS (3)
  - CHILLS [None]
  - PYREXIA [None]
  - URINARY TRACT INFECTION [None]
